FAERS Safety Report 6584891-4 (Version None)
Quarter: 2010Q1

REPORT INFORMATION
  Report Type: 
  Country: None (occurrence: None)
  Receive Date: 20100217
  Receipt Date: 20100208
  Transmission Date: 20100710
  Serious: Yes (Hospitalization)
  Sender: FDA-Public Use
  Company Number: US-NOVOPROD-304136

PATIENT
  Sex: Male
  Weight: 82.086 kg

DRUGS (4)
  1. NOVOLIN 70/30 [Suspect]
     Indication: DIABETES MELLITUS
     Dosage: UNKNOWN
     Route: 058
  2. CLONIDINE [Concomitant]
     Indication: HYPERTENSION
     Dosage: 0.3 MG, UNK
     Route: 048
  3. CLONIDINE [Concomitant]
     Dosage: 0.3 MG, TID (EVERY 8 HOURS)
     Route: 048
     Dates: start: 20100101, end: 20100101
  4. LASIX [Concomitant]
     Indication: HYPERTENSION
     Dosage: UNK
     Dates: end: 20100101

REACTIONS (2)
  - HYPERTENSIVE CRISIS [None]
  - HYPOGLYCAEMIA [None]
